FAERS Safety Report 7766188-X (Version None)
Quarter: 2011Q3

REPORT INFORMATION
  Report Type: 
  Country: None (occurrence: None)
  Receive Date: 20110921
  Receipt Date: 20110912
  Transmission Date: 20111222
  Serious: Yes (Disabling)
  Sender: FDA-Public Use
  Company Number: GB-RB-032162-11

PATIENT
  Age: 40 Year
  Sex: Female
  Weight: 96 kg

DRUGS (2)
  1. SUBUTEX [Suspect]
     Indication: DRUG DEPENDENCE
     Dates: start: 20110728
  2. METHADONE HCL [Concomitant]
     Indication: PRODUCT USED FOR UNKNOWN INDICATION
     Dates: start: 20110526

REACTIONS (2)
  - HALLUCINATION, AUDITORY [None]
  - MALAISE [None]
